FAERS Safety Report 20901185 (Version 2)
Quarter: 2022Q4

REPORT INFORMATION
  Report Type: Report from Study
  Country: SE (occurrence: SE)
  Receive Date: 20220601
  Receipt Date: 20221214
  Transmission Date: 20230112
  Serious: Yes (Hospitalization, Other)
  Sender: FDA-Public Use
  Company Number: SE-BRISTOL-MYERS SQUIBB COMPANY-2022-048165

PATIENT
  Age: 57 Year
  Sex: Female

DRUGS (5)
  1. NIVOLUMAB [Suspect]
     Active Substance: NIVOLUMAB
     Indication: Uveal melanoma
     Dosage: ONGOING
     Route: 042
     Dates: start: 20220428, end: 20220428
  2. IPILIMUMAB [Suspect]
     Active Substance: IPILIMUMAB
     Indication: Uveal melanoma
     Dosage: ONGOING
     Route: 042
     Dates: start: 20220428, end: 20220428
  3. ACETAMINOPHEN [Concomitant]
     Active Substance: ACETAMINOPHEN
     Indication: Influenza like illness
  4. IBUPROFEN [Concomitant]
     Active Substance: IBUPROFEN
     Indication: Influenza like illness
  5. PREDNISOLONE [Concomitant]
     Active Substance: PREDNISOLONE
     Indication: Influenza like illness
     Dosage: DAILY

REACTIONS (1)
  - Encephalitis [Recovered/Resolved with Sequelae]

NARRATIVE: CASE EVENT DATE: 20220519
